FAERS Safety Report 8100415-4 (Version None)
Quarter: 2012Q1

REPORT INFORMATION
  Report Type: 
  Country: None (occurrence: None)
  Receive Date: 20120129
  Receipt Date: 20111115
  Transmission Date: 20120608
  Serious: No
  Sender: FDA-Public Use
  Company Number: US-ABBOTT-11P-163-0866604-00

PATIENT
  Age: 38 Year
  Sex: Female

DRUGS (7)
  1. XANAX [Concomitant]
     Indication: ANXIETY
     Dosage: 0.25 MG PRN
  2. PHENERGAN [Concomitant]
     Indication: NAUSEA
  3. KLONOPIN [Concomitant]
     Indication: ILL-DEFINED DISORDER
     Dosage: TWO TABLETS AT BEDTIME
  4. PRILOSEC [Concomitant]
     Indication: GASTROOESOPHAGEAL REFLUX DISEASE
     Dosage: AS NEEDED
  5. COMPAZINE [Concomitant]
     Indication: NAUSEA
     Dosage: AS NEEDED
  6. HUMIRA [Suspect]
     Indication: CROHN'S DISEASE
     Dates: start: 20110701
  7. ARMODAFINIL [Concomitant]
     Indication: PROPHYLAXIS

REACTIONS (8)
  - INJECTION SITE PAIN [None]
  - SINUSITIS [None]
  - NAUSEA [None]
  - OROPHARYNGEAL PAIN [None]
  - DYSGEUSIA [None]
  - SWOLLEN TONGUE [None]
  - APHTHOUS STOMATITIS [None]
  - GASTROOESOPHAGEAL REFLUX DISEASE [None]
